FAERS Safety Report 14632187 (Version 1)
Quarter: 2018Q1

REPORT INFORMATION
  Report Type: Spontaneous
  Country: US (occurrence: US)
  Receive Date: 20180313
  Receipt Date: 20180313
  Transmission Date: 20180509
  Serious: No
  Sender: FDA-Public Use
  Company Number: US-BAYER-2018-045918

PATIENT
  Age: 44 Year
  Sex: Female

DRUGS (7)
  1. MIRENA [Suspect]
     Active Substance: LEVONORGESTREL
     Indication: MENORRHAGIA
     Dosage: 20 MCG/24HR, CONT
     Route: 015
     Dates: start: 20140307
  2. MIRENA [Suspect]
     Active Substance: LEVONORGESTREL
  3. ARMOUR THYROID [Concomitant]
     Active Substance: THYROID, PORCINE
     Indication: HYPOTHYROIDISM
  4. MAGNESIUM [Concomitant]
     Active Substance: MAGNESIUM
  5. VITAMIN B3 [Concomitant]
     Active Substance: NIACIN
  6. ARNICA [Concomitant]
     Active Substance: ARNICA MONTANA FLOWER
     Indication: MYALGIA
  7. MULTIVITAMIN [Concomitant]
     Active Substance: VITAMINS

REACTIONS (9)
  - Sciatic nerve neuropathy [None]
  - Breast cyst [None]
  - Abdominal pain [None]
  - Vaginal haemorrhage [Recovered/Resolved]
  - Headache [None]
  - Malaise [None]
  - Palpitations [None]
  - Fatigue [None]
  - Back pain [None]
